FAERS Safety Report 7893538-6 (Version None)
Quarter: 2011Q4

REPORT INFORMATION
  Report Type: 
  Country: None (occurrence: None)
  Receive Date: 20111104
  Receipt Date: 20111024
  Transmission Date: 20120403
  Serious: Yes (Other)
  Sender: FDA-Public Use
  Company Number: CA-MERCK-1110USA03439

PATIENT
  Age: 24 Year
  Sex: Female
  Weight: 75 kg

DRUGS (2)
  1. SINGULAIR [Suspect]
     Route: 048
  2. ALESSE [Concomitant]
     Route: 065

REACTIONS (4)
  - ABNORMAL DREAMS [None]
  - HALLUCINATION, VISUAL [None]
  - SUICIDAL IDEATION [None]
  - NIGHT SWEATS [None]
